FAERS Safety Report 25261639 (Version 2)
Quarter: 2025Q2

REPORT INFORMATION
  Report Type: Report from Study
  Country: US (occurrence: US)
  Receive Date: 20250502
  Receipt Date: 20250609
  Transmission Date: 20250717
  Serious: Yes (Hospitalization)
  Sender: TAKEDA
  Company Number: US-TAKEDA-2025TUS032212

PATIENT
  Sex: Male

DRUGS (2)
  1. MARIBAVIR [Suspect]
     Active Substance: MARIBAVIR
     Indication: Cytomegalovirus infection
     Dosage: 400 MILLIGRAM, BID
     Dates: start: 20250307
  2. MARIBAVIR [Suspect]
     Active Substance: MARIBAVIR

REACTIONS (8)
  - Cytomegalovirus infection [Unknown]
  - Drug ineffective [Unknown]
  - Product use issue [Unknown]
  - Product distribution issue [Unknown]
  - Dysgeusia [Unknown]
  - Taste disorder [Unknown]
  - Decreased appetite [Unknown]
  - Nausea [Unknown]
